FAERS Safety Report 6154805-X (Version None)
Quarter: 2009Q2

REPORT INFORMATION
  Report Type: 
  Country: None (occurrence: None)
  Receive Date: 20090414
  Receipt Date: 20090407
  Transmission Date: 20091009
  Serious: Yes (Hospitalization)
  Sender: FDA-Public Use
  Company Number: PHHY2009FR06965

PATIENT
  Sex: Male

DRUGS (5)
  1. EXJADE [Suspect]
     Indication: HAEMOCHROMATOSIS
     Dosage: UNK
     Dates: start: 20090115
  2. APROVEL [Suspect]
     Indication: HYPERTENSION
     Dosage: 150 MG DAILY
  3. MOPRAL [Concomitant]
  4. MAGNESIUM SULFATE [Concomitant]
  5. PHOSPHORUS [Concomitant]

REACTIONS (14)
  - ABDOMINAL PAIN UPPER [None]
  - AMINOACIDURIA [None]
  - BLOOD CREATININE INCREASED [None]
  - CONSTIPATION [None]
  - FANCONI SYNDROME [None]
  - GENERAL PHYSICAL HEALTH DETERIORATION [None]
  - GLYCOSURIA [None]
  - HYPOKALAEMIA [None]
  - HYPOPHOSPHATAEMIA [None]
  - MALAISE [None]
  - METABOLIC ACIDOSIS [None]
  - PROTEINURIA [None]
  - RENAL FAILURE ACUTE [None]
  - RENAL TUBULAR ACIDOSIS [None]
